FAERS Safety Report 18950296 (Version 1)
Quarter: 2021Q1

REPORT INFORMATION
  Report Type: Spontaneous
  Country: US (occurrence: US)
  Receive Date: 20210228
  Receipt Date: 20210228
  Transmission Date: 20210420
  Serious: No
  Sender: FDA-Public Use
  Company Number: US-ROCHE-2717756

PATIENT
  Age: 62 Year
  Sex: Female
  Weight: 70.82 kg

DRUGS (34)
  1. XOLAIR [Suspect]
     Active Substance: OMALIZUMAB
     Indication: ASTHMA
     Route: 058
  2. POTASSIUM [Concomitant]
     Active Substance: POTASSIUM
     Route: 048
     Dates: start: 20201109
  3. CITRACAL (UNITED STATES) [Concomitant]
     Route: 048
  4. SYMBICORT [Concomitant]
     Active Substance: BUDESONIDE\FORMOTEROL FUMARATE DIHYDRATE
     Indication: ASTHMA
  5. XOLAIR [Suspect]
     Active Substance: OMALIZUMAB
     Indication: ASTHMA
     Route: 058
     Dates: start: 20201109
  6. HYDROXYCHLOROQUINE [Concomitant]
     Active Substance: HYDROXYCHLOROQUINE
     Route: 048
  7. EZETIMIBE. [Concomitant]
     Active Substance: EZETIMIBE
     Indication: BLOOD CHOLESTEROL INCREASED
     Route: 048
  8. LEVOCETIRIZINE [Concomitant]
     Active Substance: LEVOCETIRIZINE
     Indication: SEASONAL ALLERGY
     Route: 048
  9. VITAMIN B12 [Concomitant]
     Active Substance: CYANOCOBALAMIN
     Route: 048
  10. XOLAIR [Suspect]
     Active Substance: OMALIZUMAB
  11. XOLAIR [Suspect]
     Active Substance: OMALIZUMAB
  12. STANDARDIZED CAT HAIR [Suspect]
     Active Substance: FELIS CATUS HAIR
     Route: 065
     Dates: start: 20201117
  13. PANTOPRAZOLE [Concomitant]
     Active Substance: PANTOPRAZOLE
  14. VITAMIN D3 [Concomitant]
     Active Substance: CHOLECALCIFEROL
     Route: 048
  15. COENZYME Q10 [Concomitant]
     Active Substance: DIETARY SUPPLEMENT\UBIDECARENONE
     Route: 048
  16. OXYBUTYNIN. [Concomitant]
     Active Substance: OXYBUTYNIN CHLORIDE
     Route: 048
  17. OXYBUTYNIN. [Concomitant]
     Active Substance: OXYBUTYNIN CHLORIDE
  18. DYMISTA [Concomitant]
     Active Substance: AZELASTINE HYDROCHLORIDE\FLUTICASONE PROPIONATE
     Indication: HYPERSENSITIVITY
     Route: 045
  19. STANDARDIZED CAT HAIR [Suspect]
     Active Substance: FELIS CATUS HAIR
     Indication: HYPERSENSITIVITY
     Route: 065
     Dates: start: 2016, end: 20201110
  20. NIFEDIPINE. [Concomitant]
     Active Substance: NIFEDIPINE
     Route: 048
  21. CENTRUM SILVER [Concomitant]
     Active Substance: MINERALS\VITAMINS
     Route: 048
  22. ESTRADIOL. [Concomitant]
     Active Substance: ESTRADIOL
     Route: 048
  23. ASPIRIN. [Concomitant]
     Active Substance: ASPIRIN
     Route: 048
  24. XOLAIR [Suspect]
     Active Substance: OMALIZUMAB
  25. XOLAIR [Suspect]
     Active Substance: OMALIZUMAB
  26. EZETIMIBE. [Concomitant]
     Active Substance: EZETIMIBE
     Route: 048
  27. BIOTIN [Concomitant]
     Active Substance: BIOTIN
     Route: 048
  28. ALBUTEROL. [Concomitant]
     Active Substance: ALBUTEROL
  29. ALBUTEROL. [Concomitant]
     Active Substance: ALBUTEROL
  30. EPIPEN [Concomitant]
     Active Substance: EPINEPHRINE
  31. MAGNESIUM [Concomitant]
     Active Substance: MAGNESIUM
  32. PROAIR HFA [Concomitant]
     Active Substance: ALBUTEROL SULFATE
  33. VITAMIN C [Concomitant]
     Active Substance: ASCORBIC ACID
     Route: 048
  34. ALBUTEROL. [Concomitant]
     Active Substance: ALBUTEROL

REACTIONS (7)
  - Fatigue [Unknown]
  - Fatigue [Not Recovered/Not Resolved]
  - Grip strength decreased [Not Recovered/Not Resolved]
  - Head discomfort [Not Recovered/Not Resolved]
  - Intentional product use issue [Unknown]
  - Dizziness [Not Recovered/Not Resolved]
  - Off label use [Unknown]

NARRATIVE: CASE EVENT DATE: 20201110
